FAERS Safety Report 7001330-X (Version None)
Quarter: 2010Q3

REPORT INFORMATION
  Report Type: 
  Country: None (occurrence: None)
  Receive Date: 20100920
  Receipt Date: 20100602
  Transmission Date: 20110219
  Serious: Yes (Other)
  Sender: FDA-Public Use
  Company Number: US-ASTRAZENECA-2010SE24504

PATIENT
  Age: 53 Year
  Sex: Female

DRUGS (10)
  1. SEROQUEL [Suspect]
     Indication: BIPOLAR DISORDER
     Route: 048
     Dates: end: 20090101
  2. SEROQUEL [Suspect]
     Route: 048
     Dates: start: 20090101
  3. NEXIUM [Suspect]
     Indication: GASTRIC ULCER
     Route: 048
  4. TOPROL-XL [Concomitant]
     Indication: ARRHYTHMIA
     Route: 048
  5. DETROL LA [Concomitant]
     Indication: HYPERTONIC BLADDER
     Route: 065
  6. BENICAR HCT [Concomitant]
     Indication: HYPERTENSION
     Route: 065
  7. METHOTREXATE [Concomitant]
     Indication: RHEUMATOID ARTHRITIS
     Route: 065
  8. FOLIC ACID [Concomitant]
     Route: 065
  9. SULFASALAZINE [Concomitant]
     Indication: GASTROINTESTINAL INFLAMMATION
     Route: 065
  10. ESTRACE [Concomitant]
     Route: 065

REACTIONS (9)
  - BIPOLAR DISORDER [None]
  - COLITIS ULCERATIVE [None]
  - DIABETES MELLITUS [None]
  - DRUG DOSE OMISSION [None]
  - HYPERTONIC BLADDER [None]
  - MENTAL DISORDER [None]
  - RHEUMATOID ARTHRITIS [None]
  - SUICIDAL IDEATION [None]
  - WITHDRAWAL SYNDROME [None]
